FAERS Safety Report 8205201-2 (Version None)
Quarter: 2012Q1

REPORT INFORMATION
  Report Type: 
  Country: None (occurrence: None)
  Receive Date: 20120313
  Receipt Date: 20120308
  Transmission Date: 20120608
  Serious: Yes (Hospitalization, Other)
  Sender: FDA-Public Use
  Company Number: JP-B.I. PHARMACEUTICALS,INC./RIDGEFIELD-2012-BP-04453NB

PATIENT
  Age: 85 Year
  Sex: Female

DRUGS (10)
  1. MICARDIS [Suspect]
     Route: 048
  2. ACDEAM [Concomitant]
     Route: 065
     Dates: start: 20120305
  3. URSO 250 [Concomitant]
     Route: 065
  4. TAMIFLU [Concomitant]
     Route: 065
     Dates: start: 20120305
  5. MIRABEGRON [Suspect]
     Dosage: 50 MG
     Route: 048
     Dates: start: 20120229, end: 20120306
  6. ASVERIN [Concomitant]
     Route: 065
     Dates: start: 20120305
  7. EDIROL [Concomitant]
     Route: 065
  8. GENINAX [Suspect]
     Route: 048
     Dates: start: 20120305
  9. MAGMITT [Concomitant]
     Route: 065
  10. TULOBUTEROL [Concomitant]
     Route: 065
     Dates: start: 20120305

REACTIONS (2)
  - INFLUENZA [None]
  - URINARY RETENTION [None]
